FAERS Safety Report 4554309-1 (Version None)
Quarter: 2005Q1

REPORT INFORMATION
  Report Type: 
  Country: None (occurrence: None)
  Receive Date: 20050118
  Receipt Date: 20050105
  Transmission Date: 20050727
  Serious: Yes (Hospitalization)
  Sender: FDA-Public Use
  Company Number: FR-GLAXOSMITHKLINE-B0364026A

PATIENT
  Age: 72 Year
  Sex: Female
  Weight: 85 kg

DRUGS (5)
  1. AUGMENTIN '125' [Suspect]
     Indication: BRONCHITIS ACUTE
     Route: 048
     Dates: start: 20041010, end: 20041026
  2. EFFEXOR [Suspect]
     Indication: DYSTHYMIC DISORDER
     Dosage: 37.5MG TWICE PER DAY
     Route: 048
  3. NISISCO [Suspect]
     Indication: ESSENTIAL HYPERTENSION
     Dosage: 1UNIT PER DAY
     Route: 048
  4. XANAX [Suspect]
     Indication: DYSTHYMIC DISORDER
     Dosage: .25MG PER DAY
     Route: 048
  5. PRAVASTATIN [Suspect]
     Indication: HYPERCHOLESTEROLAEMIA
     Dosage: 1UNIT PER DAY
     Route: 048

REACTIONS (7)
  - CLOSTRIDIUM COLITIS [None]
  - HAEMATOCHEZIA [None]
  - HYPERKALAEMIA [None]
  - HYPOKALAEMIA [None]
  - HYPONATRAEMIA [None]
  - MALNUTRITION [None]
  - RENAL FAILURE [None]
